FAERS Safety Report 6528255-8 (Version None)
Quarter: 2009Q4

REPORT INFORMATION
  Report Type: 
  Country: None (occurrence: None)
  Receive Date: 20091231
  Receipt Date: 20091217
  Transmission Date: 20100525
  Serious: Yes (Other)
  Sender: FDA-Public Use
  Company Number: PAR_03120_2009

PATIENT
  Sex: Male

DRUGS (7)
  1. IBUPROFEN [Suspect]
     Indication: DRUG USE FOR UNKNOWN INDICATION
     Dosage: (1800 MG)
  2. XARELTO (XARELTO - RIVAROXABAN) (NOT SPECIFIED) [Suspect]
     Indication: KNEE ARTHROPLASTY
     Dosage: (10 MG)
     Dates: start: 20090209, end: 20090210
  3. XARELTO (XARELTO - RIVAROXABAN) (NOT SPECIFIED) [Suspect]
     Indication: THROMBOSIS PROPHYLAXIS
     Dosage: (10 MG)
     Dates: start: 20090209, end: 20090210
  4. ANTIBIOTICS [Concomitant]
  5. ANTITHROMBOTIC AGENTS [Concomitant]
  6. PANTOZOL /01263202/ [Concomitant]
  7. ANIFLAZYM [Concomitant]

REACTIONS (5)
  - DRUG INTERACTION [None]
  - HAEMORRHAGIC ANAEMIA [None]
  - POST PROCEDURAL HAEMORRHAGE [None]
  - PROTHROMBIN TIME PROLONGED [None]
  - WOUND HAEMORRHAGE [None]
